FAERS Safety Report 6513111-1 (Version None)
Quarter: 2009Q4

REPORT INFORMATION
  Report Type: 
  Country: None (occurrence: None)
  Receive Date: 20091222
  Receipt Date: 20091222
  Transmission Date: 20100525
  Serious: Yes (Other)
  Sender: FDA-Public Use
  Company Number: None

PATIENT
  Age: 45 Year
  Sex: Female
  Weight: 76.8 kg

DRUGS (1)
  1. LEVAQUIN [Suspect]
     Indication: BRONCHITIS
     Dosage: LEVAQUIN 500 DAILY PO
     Route: 048
     Dates: start: 20091205, end: 20091211

REACTIONS (3)
  - FACIAL PALSY [None]
  - HEADACHE [None]
  - PAIN [None]
